FAERS Safety Report 25484040 (Version 1)
Quarter: 2025Q2

REPORT INFORMATION
  Report Type: Spontaneous
  Country: JP (occurrence: JP)
  Receive Date: 20250626
  Receipt Date: 20250626
  Transmission Date: 20250717
  Serious: Yes (Other)
  Sender: AMGEN
  Company Number: JP-AMGEN-JPNSP2025121795

PATIENT
  Sex: Female

DRUGS (1)
  1. EVENITY [Suspect]
     Active Substance: ROMOSOZUMAB-AQQG
     Indication: Product used for unknown indication
     Route: 058

REACTIONS (17)
  - Compression fracture [Unknown]
  - Gastric ulcer [Unknown]
  - Cerebral infarction [Unknown]
  - Asthenia [Unknown]
  - Fatigue [Unknown]
  - Pyrexia [Unknown]
  - Ear pain [Unknown]
  - Loose tooth [Unknown]
  - Hypoaesthesia [Unknown]
  - Facial pain [Unknown]
  - Hyperventilation [Unknown]
  - Dysphagia [Unknown]
  - Weight decreased [Unknown]
  - Physical deconditioning [Recovering/Resolving]
  - Oropharyngeal discomfort [Unknown]
  - Feeling abnormal [Unknown]
  - Fear of injection [Unknown]
